FAERS Safety Report 11323974 (Version 1)
Quarter: 2015Q3

REPORT INFORMATION
  Report Type: Report from Study
  Country: IL (occurrence: IL)
  Receive Date: 20150730
  Receipt Date: 20150730
  Transmission Date: 20151125
  Serious: Yes (Other)
  Sender: FDA-Public Use
  Company Number: IL-SHIRE-IL201405776

PATIENT
  Sex: Female
  Weight: 59.7 kg

DRUGS (2)
  1. VELAGLUCERASE ALFA [Suspect]
     Active Substance: VELAGLUCERASE ALFA
     Dosage: 60 IU/KG, UNK
     Route: 041
     Dates: start: 20110910
  2. VELAGLUCERASE ALFA [Suspect]
     Active Substance: VELAGLUCERASE ALFA
     Indication: GAUCHER^S DISEASE
     Dosage: 30 IU/KG, 1X/2WKS
     Route: 041
     Dates: start: 201107

REACTIONS (3)
  - Infusion related reaction [Recovered/Resolved]
  - Respiratory distress [Recovered/Resolved]
  - Maternal exposure during pregnancy [Recovered/Resolved]

NARRATIVE: CASE EVENT DATE: 2014
